FAERS Safety Report 6231916-1 (Version None)
Quarter: 2009Q2

REPORT INFORMATION
  Report Type: 
  Country: None (occurrence: None)
  Receive Date: 20090616
  Receipt Date: 20090605
  Transmission Date: 20091009
  Serious: Yes (Other)
  Sender: FDA-Public Use
  Company Number: FR-TEVA-197809ISR

PATIENT
  Sex: Female

DRUGS (4)
  1. COPAXONE [Suspect]
     Indication: MULTIPLE SCLEROSIS
     Route: 058
     Dates: start: 20040101
  2. PREGABALIN [Concomitant]
     Indication: PAIN
     Route: 048
     Dates: start: 20070115
  3. LEVOCARNITINE [Concomitant]
     Indication: PAIN
     Route: 048
     Dates: start: 20050104
  4. CLONAZEPAM [Concomitant]
     Indication: PAIN
     Route: 048
     Dates: start: 20050104

REACTIONS (1)
  - LIPODYSTROPHY ACQUIRED [None]
